FAERS Safety Report 5099800-7 (Version None)
Quarter: 2006Q3

REPORT INFORMATION
  Report Type: 
  Country: None (occurrence: None)
  Receive Date: 20060906
  Receipt Date: 20060824
  Transmission Date: 20061208
  Serious: Yes (Other)
  Sender: FDA-Public Use
  Company Number: 2006104788

PATIENT
  Age: 48 Year
  Sex: Female

DRUGS (1)
  1. VIAGRA [Suspect]
     Indication: SEXUAL DYSFUNCTION
     Dosage: (AS NECESSARY)
     Dates: start: 20060228

REACTIONS (1)
  - BLINDNESS UNILATERAL [None]
